FAERS Safety Report 15528815 (Version 1)
Quarter: 2018Q4

REPORT INFORMATION
  Report Type: Spontaneous
  Country: FR (occurrence: FR)
  Receive Date: 20181020
  Receipt Date: 20181020
  Transmission Date: 20190205
  Serious: Yes (Hospitalization)
  Sender: FDA-Public Use
  Company Number: FR-AUROBINDO-AUR-APL-2018-051260

PATIENT
  Age: 63 Year
  Sex: Female

DRUGS (26)
  1. CARBOPLATIN. [Suspect]
     Active Substance: CARBOPLATIN
     Dosage: 6 MG/ML/MIN6 UNK ()
     Route: 042
     Dates: start: 20170123, end: 20170123
  2. FOLIC ACID. [Concomitant]
     Active Substance: FOLIC ACID
     Indication: PROPHYLAXIS
     Dosage: UNK ()
     Route: 065
     Dates: start: 20170105, end: 20171016
  3. ONDANSETRON [Concomitant]
     Active Substance: ONDANSETRON
     Indication: PROPHYLAXIS
     Dosage: UNK ()
     Route: 065
     Dates: start: 20170213, end: 20170213
  4. METOCLOPRAMIDE. [Concomitant]
     Active Substance: METOCLOPRAMIDE
     Indication: PROPHYLAXIS
     Dosage: UNK ()
     Route: 065
     Dates: start: 20170124, end: 20170608
  5. PEGFILGRASTIM [Concomitant]
     Active Substance: PEGFILGRASTIM
     Indication: FEBRILE NEUTROPENIA
  6. SODIUM BICARBONATE BP [Concomitant]
     Active Substance: SODIUM BICARBONATE
     Indication: PROPHYLAXIS
  7. BISOPROLOL [Concomitant]
     Active Substance: BISOPROLOL
     Indication: HYPERTENSION
     Dosage: UNK
     Route: 065
  8. VITAMIN B12 [Concomitant]
     Active Substance: CYANOCOBALAMIN
     Indication: PROPHYLAXIS
     Dosage: UNK
     Route: 065
     Dates: start: 20170105, end: 20171016
  9. PEMETREXED. [Concomitant]
     Active Substance: PEMETREXED
     Dosage: 925 MG, Q3W
     Route: 065
     Dates: start: 20170213, end: 20170213
  10. ONDANSETRON [Concomitant]
     Active Substance: ONDANSETRON
     Indication: PROPHYLAXIS
     Dosage: UNK ()
     Route: 065
     Dates: start: 20170123, end: 20170123
  11. ONDANSETRON [Concomitant]
     Active Substance: ONDANSETRON
     Dosage: UNK ()
     Route: 065
     Dates: start: 20170306, end: 20170306
  12. PEGFILGRASTIM [Concomitant]
     Active Substance: PEGFILGRASTIM
     Indication: FEBRILE NEUTROPENIA
     Dosage: UNK ()
     Route: 065
     Dates: start: 20170124, end: 20170608
  13. DESLORATADINE. [Concomitant]
     Active Substance: DESLORATADINE
     Indication: HYPERSENSITIVITY
     Dosage: UNK ()
     Route: 065
     Dates: start: 201711, end: 201712
  14. DESLORATADINE. [Concomitant]
     Active Substance: DESLORATADINE
     Indication: HYPERSENSITIVITY
  15. METOCLOPRAMIDE. [Concomitant]
     Active Substance: METOCLOPRAMIDE
     Indication: PROPHYLAXIS
  16. TINZAPARIN [Concomitant]
     Active Substance: TINZAPARIN
     Indication: PULMONARY EMBOLISM
     Dosage: UNK
     Route: 065
     Dates: start: 20170126, end: 20170323
  17. BISOPROLOL [Concomitant]
     Active Substance: BISOPROLOL
     Indication: HYPERTENSION
     Dosage: UNK ()
  18. CARBOPLATIN. [Suspect]
     Active Substance: CARBOPLATIN
     Dosage: 550 MG
     Dates: start: 20170213, end: 20170213
  19. ATEZOLIZUMAB. [Suspect]
     Active Substance: ATEZOLIZUMAB
     Indication: NON-SMALL CELL LUNG CANCER STAGE IV
     Dosage: 1200 MG, Q3W
     Route: 042
     Dates: start: 20170123
  20. HYDROCHLOROTHIAZIDE. [Concomitant]
     Active Substance: HYDROCHLOROTHIAZIDE
     Indication: HYPERTENSION
     Dosage: UNK
     Route: 065
  21. CARBOPLATIN. [Suspect]
     Active Substance: CARBOPLATIN
     Indication: NON-SMALL CELL LUNG CANCER STAGE IV
     Dosage: 6 MG/ML/MIN6
     Route: 042
     Dates: start: 20170123
  22. CARBOPLATIN. [Suspect]
     Active Substance: CARBOPLATIN
     Dosage: 550 MG
     Route: 065
     Dates: start: 20170213
  23. FOLIC ACID. [Concomitant]
     Active Substance: FOLIC ACID
     Indication: PROPHYLAXIS
  24. PEMETREXED. [Concomitant]
     Active Substance: PEMETREXED
     Indication: PRODUCT USED FOR UNKNOWN INDICATION
     Dosage: 500 MG/M2, Q3W
     Route: 042
     Dates: start: 20170123, end: 20170123
  25. SODIUM BICARBONATE BP [Concomitant]
     Active Substance: SODIUM BICARBONATE
     Indication: PROPHYLAXIS
     Dosage: UNK ()
     Route: 065
     Dates: start: 20170124, end: 201802
  26. HYDROCHLOROTHIAZIDE. [Concomitant]
     Active Substance: HYDROCHLOROTHIAZIDE
     Indication: HYPERTENSION
     Dosage: UNK ()

REACTIONS (1)
  - Urinary tract infection [Recovered/Resolved]

NARRATIVE: CASE EVENT DATE: 20170219
